FAERS Safety Report 12398974 (Version 2)
Quarter: 2017Q2

REPORT INFORMATION
  Report Type: Spontaneous
  Country: US (occurrence: US)
  Receive Date: 20160524
  Receipt Date: 20170518
  Transmission Date: 20170830
  Serious: Yes (Death, Hospitalization)
  Sender: FDA-Public Use
  Company Number: GXBR2016US001898

PATIENT
  Age: 76 Year
  Sex: Female

DRUGS (1)
  1. AMIODARONE HYDROCHLORIDE. [Suspect]
     Active Substance: AMIODARONE HYDROCHLORIDE
     Indication: ATRIAL FIBRILLATION
     Dosage: 200 MG, QD
     Route: 048
     Dates: start: 2007, end: 201310

REACTIONS (12)
  - Off label use [Unknown]
  - Wheezing [Fatal]
  - Restlessness [Unknown]
  - Dyspnoea [Fatal]
  - Depression [Unknown]
  - Nervousness [Unknown]
  - Pulmonary toxicity [Fatal]
  - Cough [Fatal]
  - Fatigue [Fatal]
  - Asthenia [Fatal]
  - Irritability [Unknown]
  - Disturbance in attention [Unknown]
